FAERS Safety Report 16679238 (Version 1)
Quarter: 2019Q3

REPORT INFORMATION
  Report Type: Spontaneous
  Country: US (occurrence: US)
  Receive Date: 20190624
  Receipt Date: 20190624
  Transmission Date: 20191004
  Serious: No
  Sender: FDA-Public Use
  Company Number: None

PATIENT
  Age: 58 Year
  Sex: Male

DRUGS (1)
  1. COSENTYX [Suspect]
     Active Substance: SECUKINUMAB
     Indication: PSORIASIS
     Route: 058
     Dates: start: 20190311

REACTIONS (4)
  - Skin discolouration [None]
  - Skin exfoliation [None]
  - Psoriasis [None]
  - Skin ulcer [None]

NARRATIVE: CASE EVENT DATE: 201906
